FAERS Safety Report 6311060-5 (Version None)
Quarter: 2009Q3

REPORT INFORMATION
  Report Type: 
  Country: None (occurrence: None)
  Receive Date: 20090817
  Receipt Date: 20090811
  Transmission Date: 20100115
  Serious: Yes (Hospitalization)
  Sender: FDA-Public Use
  Company Number: US-JNJFOC-20090804099

PATIENT
  Sex: Female

DRUGS (3)
  1. FLEXERIL [Suspect]
     Indication: MUSCLE SPASMS
  2. REBIF [Suspect]
     Indication: MULTIPLE SCLEROSIS
     Route: 058
  3. BIRTH CONTROL PILLS [Suspect]
     Indication: CONTRACEPTION
     Route: 048

REACTIONS (5)
  - ANTEPARTUM HAEMORRHAGE [None]
  - CONVULSION [None]
  - DRUG EXPOSURE DURING PREGNANCY [None]
  - PULMONARY EMBOLISM [None]
  - RETAINED PLACENTA OR MEMBRANES [None]
